FAERS Safety Report 6758879-4 (Version None)
Quarter: 2010Q2

REPORT INFORMATION
  Report Type: 
  Country: None (occurrence: None)
  Receive Date: 20100607
  Receipt Date: 20100524
  Transmission Date: 20101027
  Serious: Yes (Hospitalization)
  Sender: FDA-Public Use
  Company Number: PHHY2010JP32880

PATIENT
  Age: 45 Year
  Sex: Female

DRUGS (9)
  1. NEORAL [Suspect]
     Indication: RENAL TRANSPLANT
     Dosage: 100 MG
     Route: 048
     Dates: end: 20100508
  2. NEORAL [Interacting]
     Dosage: 150 MG
     Route: 048
     Dates: start: 20100509, end: 20100511
  3. NEORAL [Interacting]
     Dosage: 200 MG
     Route: 048
     Dates: start: 20100512, end: 20100514
  4. NEORAL [Interacting]
     Dosage: 250 MG
     Route: 048
     Dates: start: 20100515, end: 20100518
  5. NEORAL [Interacting]
     Dosage: 300 MG
     Route: 048
     Dates: start: 20100519
  6. SPANIDIN [Interacting]
     Indication: RENAL TRANSPLANT
     Dosage: 5 MG/KG
     Route: 042
     Dates: start: 20100507, end: 20100513
  7. METHYLPREDNISOLONE [Concomitant]
  8. CELLCEPT [Concomitant]
     Indication: RENAL TRANSPLANT
     Dosage: 1000 MG
     Dates: start: 20071023
  9. PREDONINE [Concomitant]
     Indication: RENAL TRANSPLANT
     Dosage: 5 MG
     Route: 048

REACTIONS (4)
  - DRUG INTERACTION [None]
  - IMMUNOSUPPRESSANT DRUG LEVEL DECREASED [None]
  - KIDNEY TRANSPLANT REJECTION [None]
  - VOMITING [None]
